FAERS Safety Report 10425571 (Version 2)
Quarter: 2014Q4

REPORT INFORMATION
  Report Type: Report from Study
  Country: US (occurrence: US)
  Receive Date: 20140902
  Receipt Date: 20141020
  Transmission Date: 20150528
  Serious: Yes (Other)
  Sender: FDA-Public Use
  Company Number: US-SA-2014SA116423

PATIENT
  Age: 73 Year
  Sex: Male

DRUGS (12)
  1. TRICOR [Concomitant]
     Active Substance: FENOFIBRATE
     Indication: BLOOD CHOLESTEROL
  2. LANTUS [Suspect]
     Active Substance: INSULIN GLARGINE
     Indication: TYPE 2 DIABETES MELLITUS
     Dosage: DOSE: 35 UNITS QAM AND 35 UNITS QPM.
     Route: 065
     Dates: start: 200505
  3. LANTUS [Suspect]
     Active Substance: INSULIN GLARGINE
     Indication: TYPE 2 DIABETES MELLITUS
     Dosage: DOSE: 35 UNITS QAM AND 35 UNITS QPM.
     Route: 065
     Dates: start: 200505
  4. LIPITOR [Concomitant]
     Active Substance: ATORVASTATIN CALCIUM
     Indication: BLOOD CHOLESTEROL
  5. LANTUS SOLOSTAR [Concomitant]
     Active Substance: INSULIN GLARGINE
  6. ATENOLOL. [Concomitant]
     Active Substance: ATENOLOL
     Indication: BLOOD PRESSURE
  7. BENAZEPRIL [Concomitant]
     Active Substance: BENAZEPRIL\BENAZEPRIL HYDROCHLORIDE
     Indication: BLOOD PRESSURE
  8. ASPIRIN. [Concomitant]
     Active Substance: ASPIRIN
     Indication: CARDIAC DISORDER
     Dosage: DOSE: 125
  9. SOLOSTAR [Concomitant]
     Active Substance: DEVICE
  10. NOVOLOG [Concomitant]
     Active Substance: INSULIN ASPART
     Indication: DIABETES MELLITUS
     Dosage: DOSE: 6 -15 UNITS
  11. LUPRON [Concomitant]
     Active Substance: LEUPROLIDE ACETATE
     Indication: NEOPLASM MALIGNANT
     Dosage: 1/3 MOS
     Dates: end: 201407
  12. FUROSEMIDE. [Concomitant]
     Active Substance: FUROSEMIDE
     Indication: CARDIAC FAILURE CONGESTIVE

REACTIONS (2)
  - Off label use [Unknown]
  - Prostate cancer [Not Recovered/Not Resolved]

NARRATIVE: CASE EVENT DATE: 2013
